FAERS Safety Report 8772932 (Version 3)
Quarter: 2013Q1

REPORT INFORMATION
  Report Type: Spontaneous
  Country: US (occurrence: US)
  Receive Date: 20120907
  Receipt Date: 20130213
  Transmission Date: 20140127
  Serious: Yes (Hospitalization, Other)
  Sender: FDA-Public Use
  Company Number: US-BAYER-2012-092582

PATIENT
  Age: 46 Year
  Sex: Female
  Weight: 79.82 kg

DRUGS (4)
  1. YASMIN [Suspect]
     Indication: CONTRACEPTION
     Dosage: UNK
     Dates: start: 2002, end: 2005
  2. YAZ [Suspect]
     Indication: MENOPAUSAL SYMPTOMS
     Dosage: UNK
     Dates: start: 2008, end: 201008
  3. YAZ [Suspect]
     Indication: HORMONE REPLACEMENT THERAPY
  4. NSAID^S [Concomitant]
     Indication: HEADACHE

REACTIONS (9)
  - Pulmonary embolism [None]
  - Deep vein thrombosis [None]
  - Thrombophlebitis superficial [Recovered/Resolved]
  - Pulmonary infarction [None]
  - Off label use [None]
  - Injury [None]
  - Pain [None]
  - Emotional distress [None]
  - Pain [None]
